FAERS Safety Report 9892103 (Version 1)
Quarter: 2014Q1

REPORT INFORMATION
  Report Type: Spontaneous
  Country: US (occurrence: US)
  Receive Date: 20140212
  Receipt Date: 20140212
  Transmission Date: 20141002
  Serious: Yes (Other)
  Sender: FDA-Public Use
  Company Number: US-AMGEN-USASP2014008650

PATIENT
  Age: 86 Year
  Sex: Female

DRUGS (2)
  1. PROLIA [Suspect]
     Indication: OSTEOPOROSIS POSTMENOPAUSAL
     Route: 065
  2. PREDNISONE [Concomitant]
     Dosage: 5 MG, QD

REACTIONS (9)
  - Exostosis [Unknown]
  - Eye haemorrhage [Unknown]
  - Blindness transient [Unknown]
  - Pelvic pain [Unknown]
  - Limb discomfort [Unknown]
  - Blood disorder [Unknown]
  - Dysphonia [Unknown]
  - Memory impairment [Unknown]
  - Intraocular pressure increased [Unknown]
